FAERS Safety Report 4633387-5 (Version None)
Quarter: 2005Q2

REPORT INFORMATION
  Report Type: 
  Country: None (occurrence: None)
  Receive Date: 20050408
  Receipt Date: 20050329
  Transmission Date: 20051028
  Serious: Yes (Life-Threatening)
  Sender: FDA-Public Use
  Company Number: 2005US000345

PATIENT
  Age: 58 Year
  Sex: Female

DRUGS (7)
  1. PROTOPIC [Suspect]
     Indication: DERMATITIS ATOPIC
     Dosage: TOPICAL
     Route: 061
  2. ELIDEL (PIMECROLIMUS, PIMECROLIMUS) [Concomitant]
  3. EUCERIN CREME (WOOL FAT, PETROLATUM,  PARAFFIN, LIQUID) [Concomitant]
  4. ELOCON [Concomitant]
  5. TRIAMCINOLONE [Concomitant]
  6. BETASERON [Concomitant]
  7. PAXIL [Concomitant]

REACTIONS (1)
  - DIFFUSE LARGE B-CELL LYMPHOMA [None]
